FAERS Safety Report 13375480 (Version 1)
Quarter: 2017Q1

REPORT INFORMATION
  Report Type: Report from Study
  Country: JP (occurrence: ZA)
  Receive Date: 20170327
  Receipt Date: 20170327
  Transmission Date: 20170429
  Serious: Yes (Hospitalization)
  Sender: FDA-Public Use
  Company Number: JP-SUNOVION-2017SUN001327

PATIENT
  Sex: Male

DRUGS (8)
  1. ELTROXIN [Concomitant]
     Active Substance: LEVOTHYROXINE
     Indication: THYROID DISORDER
     Dosage: 50 ?G, UNK
     Route: 048
     Dates: start: 20160922
  2. ARCOXIA [Concomitant]
     Active Substance: ETORICOXIB
     Indication: PAIN
     Dosage: 60 UNK, UNK
     Route: 048
     Dates: start: 20160922
  3. CONVULEX [Suspect]
     Active Substance: VALPROIC ACID
     Indication: EPILEPSY
     Dosage: 300 MG, UNK
     Route: 048
     Dates: start: 20160922
  4. PEPLOC                             /00550802/ [Concomitant]
     Indication: ULCER
     Dosage: 40 MG, UNK
     Route: 048
     Dates: start: 20160922
  5. ELTROXIN [Concomitant]
     Active Substance: LEVOTHYROXINE
     Dosage: 100 UNK, UNK
     Route: 048
     Dates: start: 20160922
  6. CICLESONIDE [Suspect]
     Active Substance: CICLESONIDE
     Indication: ASTHMA
     Dosage: 160 ?G, UNK
     Route: 045
     Dates: start: 20160922
  7. SIMVACOR [Concomitant]
     Active Substance: SIMVASTATIN
     Indication: BLOOD CHOLESTEROL ABNORMAL
     Dosage: 20 MG, UNK
     Route: 048
     Dates: start: 20160922
  8. LYRICA [Concomitant]
     Active Substance: PREGABALIN
     Indication: EPILEPSY
     Dosage: 75 MG, UNK
     Route: 048
     Dates: start: 20160922

REACTIONS (2)
  - Dysuria [Unknown]
  - Investigation abnormal [Unknown]
